FAERS Safety Report 20769128 (Version 1)
Quarter: 2022Q2

REPORT INFORMATION
  Report Type: Spontaneous
  Country: JP (occurrence: JP)
  Receive Date: 20220429
  Receipt Date: 20220429
  Transmission Date: 20220721
  Serious: No
  Sender: FDA-Public Use
  Company Number: JP-MSD-2204JPN002850J

PATIENT
  Age: 64 Year
  Sex: Male

DRUGS (6)
  1. LAGEVRIO [Suspect]
     Active Substance: CELLULOSE, MICROCRYSTALLINE\CROSCARMELLOSE SODIUM\FERRIC OXIDE RED\HYPROMELLOSES\HYPROMELLOSES\MAGNE
     Indication: COVID-19 treatment
     Dosage: 200 MILLIGRAM, DAILY
     Route: 048
     Dates: start: 20220413, end: 20220415
  2. CARBOCYSTEINE [Suspect]
     Active Substance: CARBOCYSTEINE
     Dosage: 500 MILLIGRAM, TID
     Route: 048
     Dates: start: 20220413, end: 20220415
  3. HERBALS [Concomitant]
     Active Substance: HERBALS
     Dosage: UNK
     Route: 065
     Dates: end: 20220415
  4. REBAMIPIDE [Concomitant]
     Active Substance: REBAMIPIDE
     Dosage: UNK
     Route: 065
     Dates: end: 20220415
  5. CALONAL [Concomitant]
     Active Substance: ACETAMINOPHEN
     Dosage: UNK
     Route: 065
     Dates: end: 20220415
  6. TRANEXAMIC ACID [Concomitant]
     Active Substance: TRANEXAMIC ACID
     Dosage: UNK
     Route: 065
     Dates: end: 20220415

REACTIONS (3)
  - Rash [Recovered/Resolved]
  - Product use issue [Unknown]
  - Underdose [Unknown]

NARRATIVE: CASE EVENT DATE: 20220413
